FAERS Safety Report 13487965 (Version 1)
Quarter: 2017Q2

REPORT INFORMATION
  Report Type: Spontaneous
  Country: NL (occurrence: None)
  Receive Date: 20170426
  Receipt Date: 20170426
  Transmission Date: 20170830
  Serious: No
  Sender: FDA-Public Use
  Company Number: NL-009507513-1612NLD001995

PATIENT
  Age: 60 Year
  Sex: Male

DRUGS (1)
  1. BCG LIVE [Suspect]
     Active Substance: BACILLUS CALMETTE-GUERIN SUBSTRAIN TICE LIVE ANTIGEN
     Indication: BLADDER CANCER
     Dosage: POWDER FOR INSTILLATION FLUID
     Route: 043

REACTIONS (5)
  - Aortic aneurysm [None]
  - Back pain [None]
  - Psoas abscess [None]
  - Malaise [None]
  - Infective aneurysm [None]
